FAERS Safety Report 8861441 (Version 1)
Quarter: 2012Q4

REPORT INFORMATION
  Report Type: Spontaneous
  Country: US (occurrence: None)
  Receive Date: 20121024
  Receipt Date: 20121024
  Transmission Date: 20130627
  Serious: Yes (Hospitalization)
  Sender: FDA-Public Use
  Company Number: 100924-018417

PATIENT
  Age: 72 Year
  Sex: Female

DRUGS (7)
  1. SHEER COVER NOURISHING MOISTURIZER SPF 15 [Suspect]
     Dates: start: 200905, end: 20100924
  2. SHEER COVER NOURISHING MOISTURIZER SPF 15 [Suspect]
     Dates: start: 200905, end: 20100924
  3. BLOOD PRESSURE MEDS [Concomitant]
  4. CHOLESTEROL MEDS [Concomitant]
  5. OMEGA 3 [Concomitant]
  6. VITAMIN A, B, C [Concomitant]
  7. FOLIC ACID [Concomitant]

REACTIONS (2)
  - Pyrexia [None]
  - Pulmonary fibrosis [None]
